FAERS Safety Report 20847388 (Version 1)
Quarter: 2022Q2

REPORT INFORMATION
  Report Type: Spontaneous
  Country: US (occurrence: US)
  Receive Date: 20220519
  Receipt Date: 20220519
  Transmission Date: 20220721
  Serious: No
  Sender: FDA-Public Use
  Company Number: US-BRISTOL-MYERS SQUIBB COMPANY-2022-042804

PATIENT
  Age: 74 Year
  Sex: Female
  Weight: 83.46 kg

DRUGS (1)
  1. REVLIMID [Suspect]
     Active Substance: LENALIDOMIDE
     Indication: Plasma cell myeloma
     Dosage: DAILY ? 28 DAY CYCLE
     Route: 048
     Dates: start: 20170428

REACTIONS (2)
  - Dysphagia [Not Recovered/Not Resolved]
  - Product physical issue [Not Recovered/Not Resolved]
